FAERS Safety Report 8505885-5 (Version None)
Quarter: 2012Q3

REPORT INFORMATION
  Report Type: 
  Country: None (occurrence: None)
  Receive Date: 20120712
  Receipt Date: 20120706
  Transmission Date: 20120928
  Serious: Yes (Hospitalization, Other)
  Sender: FDA-Public Use
  Company Number: US-ACTELION-A-NJ2012-68155

PATIENT

DRUGS (1)
  1. VENTAVIS [Suspect]
     Indication: PULMONARY ARTERIAL HYPERTENSION
     Dosage: 2.5 ?G, 4 X DAILY
     Route: 055
     Dates: start: 20120207, end: 20120629

REACTIONS (4)
  - LIVER TRANSPLANT [None]
  - RENAL IMPAIRMENT [None]
  - HYPOTENSION [None]
  - RENAL TRANSPLANT [None]
